FAERS Safety Report 12339884 (Version 1)
Quarter: 2016Q2

REPORT INFORMATION
  Report Type: Spontaneous
  Country: US (occurrence: US)
  Receive Date: 20160506
  Receipt Date: 20160506
  Transmission Date: 20160815
  Serious: Yes (Hospitalization)
  Sender: FDA-Public Use
  Company Number: US-BEH-2016061989

PATIENT
  Age: 73 Year
  Sex: Female
  Weight: 63 kg

DRUGS (22)
  1. OXYGEN. [Concomitant]
     Active Substance: OXYGEN
  2. ZOCOR [Concomitant]
     Active Substance: SIMVASTATIN
  3. AMBIEN [Concomitant]
     Active Substance: ZOLPIDEM TARTRATE
  4. ALBUTEROL. [Concomitant]
     Active Substance: ALBUTEROL
  5. HIZENTRA [Suspect]
     Active Substance: HUMAN IMMUNOGLOBULIN G
     Indication: IMMUNODEFICIENCY COMMON VARIABLE
  6. LEXAPRO [Concomitant]
     Active Substance: ESCITALOPRAM OXALATE
  7. VITAMIN D [Concomitant]
     Active Substance: CHOLECALCIFEROL
  8. HIZENTRA [Suspect]
     Active Substance: HUMAN IMMUNOGLOBULIN G
     Route: 058
     Dates: start: 20110301
  9. ZYRTEC [Concomitant]
     Active Substance: CETIRIZINE HYDROCHLORIDE
  10. ACETYLCYSTEINE. [Concomitant]
     Active Substance: ACETYLCYSTEINE
  11. DIPHENHYDRAMINE. [Concomitant]
     Active Substance: DIPHENHYDRAMINE
  12. LIDOCAINE. [Concomitant]
     Active Substance: LIDOCAINE
  13. EPIPEN [Concomitant]
     Active Substance: EPINEPHRINE
  14. PROTONIX [Concomitant]
     Active Substance: PANTOPRAZOLE SODIUM
  15. ACETAMINOPHEN. [Concomitant]
     Active Substance: ACETAMINOPHEN
  16. PREDNISONE. [Concomitant]
     Active Substance: PREDNISONE
  17. COZAAR [Concomitant]
     Active Substance: LOSARTAN POTASSIUM
  18. SPIRIVA [Concomitant]
     Active Substance: TIOTROPIUM BROMIDE MONOHYDRATE
  19. HIZENTRA [Suspect]
     Active Substance: HUMAN IMMUNOGLOBULIN G
  20. COREG [Concomitant]
     Active Substance: CARVEDILOL
  21. ALDACTONE [Concomitant]
     Active Substance: SPIRONOLACTONE
  22. MUCINEX [Concomitant]
     Active Substance: GUAIFENESIN

REACTIONS (1)
  - PCO2 increased [Unknown]

NARRATIVE: CASE EVENT DATE: 20160402
